FAERS Safety Report 13161060 (Version 9)
Quarter: 2017Q2

REPORT INFORMATION
  Report Type: Report from Study
  Country: UA (occurrence: UA)
  Receive Date: 20170130
  Receipt Date: 20170628
  Transmission Date: 20170830
  Serious: Yes (Death, Life-Threatening, Hospitalization)
  Sender: FDA-Public Use
  Company Number: UA-ROCHE-1885333

PATIENT
  Age: 64 Year
  Sex: Male
  Weight: 98 kg

DRUGS (25)
  1. ATORVASTATINE [Concomitant]
     Active Substance: ATORVASTATIN
     Route: 065
     Dates: start: 20161122
  2. ESSENTIAL PHOSPHOLIPIDS [Concomitant]
     Indication: LIVER INJURY
     Route: 065
     Dates: start: 20170120
  3. METRONIDAZOLE. [Concomitant]
     Active Substance: METRONIDAZOLE
     Route: 065
     Dates: start: 20170127, end: 20170129
  4. ADRENALINE [Concomitant]
     Active Substance: EPINEPHRINE
     Indication: RESUSCITATION
     Route: 065
     Dates: start: 20170130, end: 20170130
  5. METOCLOPRAMIDE. [Concomitant]
     Active Substance: METOCLOPRAMIDE
     Indication: NAUSEA
     Route: 065
     Dates: start: 20170120, end: 20170129
  6. REHYDRON (UKRAINE) [Concomitant]
     Indication: NAUSEA
     Route: 065
     Dates: start: 20170120, end: 20170123
  7. GECODES [Concomitant]
     Route: 065
     Dates: start: 20170129, end: 20170130
  8. ISOSORBIDE DINITRATE. [Concomitant]
     Active Substance: ISOSORBIDE DINITRATE
     Route: 065
     Dates: start: 20170125, end: 20170126
  9. BEVACIZUMAB [Suspect]
     Active Substance: BEVACIZUMAB
     Indication: NON-SMALL CELL LUNG CANCER STAGE IV
     Dosage: DATE OF MOST RECENT DOSE OF BEVACIZUMAB (1500MG) PRIOR TO AE ONSET - 16/JAN/2017
     Route: 042
     Dates: start: 20161205
  10. ARGININE [Concomitant]
     Active Substance: ARGININE
     Route: 065
     Dates: start: 20161122
  11. TRIMETAZIDINE [Concomitant]
     Active Substance: TRIMETAZIDINE
     Route: 065
     Dates: start: 20161122
  12. FRESH FROZEN PLASMA [Concomitant]
     Active Substance: HUMAN PLASMA
     Route: 065
     Dates: start: 20170129, end: 20170129
  13. CARBOPLATIN. [Suspect]
     Active Substance: CARBOPLATIN
     Indication: NON-SMALL CELL LUNG CANCER STAGE IV
     Dosage: DATE OF MOST RECENTDOSE OF CARBOPLATIN (900MG) PRIOR TO AE ONSET - 16/JAN/2017
     Route: 042
     Dates: start: 20161205
  14. DIPHENHYDRAMINUM [Concomitant]
     Route: 065
     Dates: start: 20170116, end: 20170116
  15. RANITIDINUM [Concomitant]
     Route: 065
     Dates: start: 20170116, end: 20170116
  16. ONDANSETRON [Concomitant]
     Active Substance: ONDANSETRON
     Indication: PREMEDICATION
     Route: 065
     Dates: start: 20161226, end: 20161226
  17. ONDANSETRON [Concomitant]
     Active Substance: ONDANSETRON
     Route: 065
     Dates: start: 20170116, end: 20170116
  18. REHYDRON (UKRAINE) [Concomitant]
     Indication: VOMITING
  19. FRESH FROZEN PLASMA [Concomitant]
     Active Substance: HUMAN PLASMA
     Route: 065
     Dates: start: 20170126, end: 20170127
  20. ARIFAM [Concomitant]
     Indication: HYPERTENSION
     Route: 065
     Dates: start: 20161122
  21. GECODES [Concomitant]
     Indication: HYPOVOLAEMIA
     Route: 065
     Dates: start: 20170125, end: 20170126
  22. PACLITAXEL. [Suspect]
     Active Substance: PACLITAXEL
     Indication: NON-SMALL CELL LUNG CANCER STAGE IV
     Dosage: DATE OF MOST RECENT DOSE (442MG) PRIOR TO AE ONSET - 16/JAN/2017
     Route: 042
     Dates: start: 20161205
  23. DIPHENHYDRAMINUM [Concomitant]
     Indication: PREMEDICATION
     Route: 065
     Dates: start: 20161226, end: 20161226
  24. RANITIDINUM [Concomitant]
     Indication: PREMEDICATION
     Route: 065
     Dates: start: 20161226, end: 20161226
  25. METOCLOPRAMIDE. [Concomitant]
     Active Substance: METOCLOPRAMIDE
     Indication: VOMITING

REACTIONS (5)
  - White blood cell count decreased [Not Recovered/Not Resolved]
  - Neutrophil count decreased [Not Recovered/Not Resolved]
  - Acute kidney injury [Not Recovered/Not Resolved]
  - Large intestinal haemorrhage [Not Recovered/Not Resolved]
  - Platelet count decreased [Not Recovered/Not Resolved]

NARRATIVE: CASE EVENT DATE: 20170124
